FAERS Safety Report 8909181 (Version 1)
Quarter: 2012Q4

REPORT INFORMATION
  Report Type: Spontaneous
  Country: US (occurrence: None)
  Receive Date: 20121113
  Receipt Date: 20121113
  Transmission Date: 20130627
  Serious: No
  Sender: FDA-Public Use
  Company Number: None

PATIENT
  Age: 43 Year
  Sex: Female

DRUGS (1)
  1. VOLTAREN [Suspect]
     Dates: start: 201004, end: 20100901

REACTIONS (2)
  - Drug-induced liver injury [None]
  - Hepatitis [None]
